FAERS Safety Report 7525423-3 (Version None)
Quarter: 2011Q2

REPORT INFORMATION
  Report Type: 
  Country: None (occurrence: None)
  Receive Date: 20110606
  Receipt Date: 20110525
  Transmission Date: 20111010
  Serious: Yes (Death, Hospitalization)
  Sender: FDA-Public Use
  Company Number: US-ACTELION-A-US2011-49243

PATIENT

DRUGS (4)
  1. COUMADIN [Concomitant]
  2. REVATIO [Concomitant]
  3. TRACLEER [Suspect]
     Indication: PULMONARY ARTERIAL HYPERTENSION
     Dosage: 125
     Route: 048
     Dates: start: 20110411, end: 20110101
  4. TRACLEER [Suspect]
     Dosage: 62.5
     Route: 048
     Dates: start: 20110311, end: 20110410

REACTIONS (8)
  - CHILLS [None]
  - DIABETES MELLITUS [None]
  - MULTI-ORGAN FAILURE [None]
  - RENAL FAILURE CHRONIC [None]
  - PERICARDIAL EFFUSION [None]
  - PYREXIA [None]
  - SEPSIS [None]
  - CARDIAC TAMPONADE [None]
